FAERS Safety Report 7777502-3 (Version None)
Quarter: 2011Q3

REPORT INFORMATION
  Report Type: 
  Country: None (occurrence: None)
  Receive Date: 20110926
  Receipt Date: 20110914
  Transmission Date: 20111222
  Serious: Yes (Other)
  Sender: FDA-Public Use
  Company Number: PT-BAYER-2011-085788

PATIENT
  Age: 9 Year
  Sex: Female

DRUGS (1)
  1. ACETAMINOPHEN [Suspect]

REACTIONS (3)
  - ABDOMINAL PAIN [None]
  - HEPATITIS [None]
  - TRANSAMINASES INCREASED [None]
